FAERS Safety Report 10311097 (Version 1)
Quarter: 2014Q3

REPORT INFORMATION
  Report Type: Spontaneous
  Country: GB (occurrence: None)
  Receive Date: 20140715
  Receipt Date: 20140715
  Transmission Date: 20150326
  Serious: Yes (Life-Threatening, Hospitalization)
  Sender: FDA-Public Use
  Company Number: SYM-2014-22836

PATIENT
  Age: 53 Year
  Sex: Female

DRUGS (4)
  1. METFORMIN HYDROCHLORIDE (METFORMIN HYDROCHLORIDE) [Concomitant]
     Active Substance: METFORMIN HYDROCHLORIDE
  2. METRONIDAZOLE (METRONIDAZOLE) [Suspect]
     Active Substance: METRONIDAZOLE
     Indication: ANTIBIOTIC PROPHYLAXIS
     Route: 042
     Dates: start: 20140217, end: 20140218
  3. OMEPRAZOLE (OMEPRAZOLE) [Concomitant]
     Active Substance: OMEPRAZOLE
  4. ATORVASTATIN (ATORVASTATIN) [Concomitant]
     Active Substance: ATORVASTATIN

REACTIONS (1)
  - Anaphylactic shock [None]

NARRATIVE: CASE EVENT DATE: 20140217
